FAERS Safety Report 24222072 (Version 2)
Quarter: 2024Q3

REPORT INFORMATION
  Report Type: Report from Study
  Country: US (occurrence: US)
  Receive Date: 20240819
  Receipt Date: 20240823
  Transmission Date: 20241017
  Serious: Yes (Death, Hospitalization, Other)
  Sender: AMNEAL
  Company Number: US-AMNEAL PHARMACEUTICALS-2024-AMRX-02914

PATIENT
  Sex: Male

DRUGS (3)
  1. CARBIDOPA\LEVODOPA [Suspect]
     Active Substance: CARBIDOPA\LEVODOPA
     Indication: Parkinson^s disease
     Dosage: (245/61.25 MG) TAKE 03 CAPSULES BY MOUTH AT 6AM AND 10 AM AND 2 CAPSULES BY MOUTH AT 2PM, 6PM AND 10
     Route: 048
  2. CARBIDOPA\LEVODOPA [Suspect]
     Active Substance: CARBIDOPA\LEVODOPA
     Dosage: (245/61.25 MG) 2 CAPSULES FIVE TIMES A DAY
     Route: 048
     Dates: start: 20220613
  3. CARBIDOPA\LEVODOPA [Suspect]
     Active Substance: CARBIDOPA\LEVODOPA
     Dosage: (245/61.25 MG) 2 CAPSULES FOUR TIMES DAILY
     Route: 048
     Dates: start: 20240111

REACTIONS (3)
  - Death [Fatal]
  - Dementia [None]
  - Hallucination [Unknown]
